FAERS Safety Report 17132755 (Version 1)
Quarter: 2019Q4

REPORT INFORMATION
  Report Type: Other
  Country: GB (occurrence: GB)
  Receive Date: 20191210
  Receipt Date: 20191210
  Transmission Date: 20200122
  Serious: Yes (Death, Life-Threatening, Hospitalization, Other)
  Sender: FDA-Public Use
  Company Number: GB-MACLEODS PHARMACEUTICALS US LTD-MAC2019021972

PATIENT

DRUGS (14)
  1. CLOPIDOGREL [Suspect]
     Active Substance: CLOPIDOGREL BISULFATE
     Indication: TRANSIENT ISCHAEMIC ATTACK
     Dosage: 75 MILLIGRAM, QD, 14 DAY COURSE
     Route: 048
     Dates: end: 20190525
  2. DUORESP SPIROMAX [Concomitant]
     Active Substance: BUDESONIDE\FORMOTEROL
     Indication: CHRONIC OBSTRUCTIVE PULMONARY DISEASE
     Dosage: 2 DOSAGE FORM, QD, 320/9
     Route: 055
     Dates: start: 201903
  3. DIGOXIN. [Concomitant]
     Active Substance: DIGOXIN
     Indication: ATRIAL FIBRILLATION
     Dosage: 125 MICROGRAM, QD
     Route: 048
     Dates: start: 201906
  4. PARACETAMOL [Concomitant]
     Active Substance: ACETAMINOPHEN
     Indication: PAIN
     Dosage: 4 GRAM, QD
     Route: 048
     Dates: start: 201902, end: 201903
  5. ZOPICLONE [Concomitant]
     Active Substance: ZOPICLONE
     Indication: INSOMNIA
     Dosage: 7.5 MILLIGRAM, QD, AT NIGHT
     Route: 048
     Dates: start: 201903
  6. ADCAL-D3 [Concomitant]
     Active Substance: CALCIUM CARBONATE\CHOLECALCIFEROL
     Indication: SPINAL COMPRESSION FRACTURE
     Dosage: 2 DOSAGE FORM, QD
     Route: 048
     Dates: start: 201906
  7. CARVEDILOL. [Concomitant]
     Active Substance: CARVEDILOL
     Indication: CARDIAC PACEMAKER INSERTION
     Dosage: 12.5 MILLIGRAM, QD
     Route: 048
     Dates: start: 201811
  8. AQUEOUS CREAM [Concomitant]
     Indication: PRODUCT USED FOR UNKNOWN INDICATION
     Dosage: 1 DOSAGE FORM, AS NECESSARY, SOAP SUBSTITUTE
     Route: 061
     Dates: start: 201902, end: 201903
  9. APIXABAN [Suspect]
     Active Substance: APIXABAN
     Indication: TRANSIENT ISCHAEMIC ATTACK
     Dosage: 10 MILLIGRAM, QD
     Route: 048
     Dates: end: 20190524
  10. ALENDRONIC ACID [Concomitant]
     Active Substance: ALENDRONIC ACID
     Indication: SPINAL COMPRESSION FRACTURE
     Dosage: 70 MILLIGRAM, Q.W.
     Route: 048
     Dates: start: 201906
  11. ATORVASTATIN [Concomitant]
     Active Substance: ATORVASTATIN
     Indication: TRANSIENT ISCHAEMIC ATTACK
     Dosage: 20 MILLIGRAM, QD
     Route: 048
     Dates: start: 201811
  12. OMEPRAZOLE. [Concomitant]
     Active Substance: OMEPRAZOLE
     Indication: DYSPEPSIA
     Dosage: 20 MILLIGRAM, QD
     Route: 048
     Dates: start: 201903
  13. HYDROMOL [Concomitant]
     Indication: DERMATITIS
     Dosage: 2 DOSAGE FORM, QD
     Route: 061
     Dates: start: 201902, end: 201903
  14. BRALTUS [Concomitant]
     Active Substance: TIOTROPIUM BROMIDE
     Indication: CHRONIC OBSTRUCTIVE PULMONARY DISEASE
     Dosage: 10 MICROGRAM, QD
     Route: 065
     Dates: start: 201903

REACTIONS (6)
  - Intracranial pressure increased [Fatal]
  - Basal ganglia haemorrhage [Fatal]
  - Hydrocephalus [Fatal]
  - Brain oedema [Fatal]
  - Cerebral ventricle dilatation [Fatal]
  - Hypoaesthesia [Fatal]

NARRATIVE: CASE EVENT DATE: 20190610
